FAERS Safety Report 5763401-5 (Version None)
Quarter: 2008Q2

REPORT INFORMATION
  Report Type: 
  Country: None (occurrence: None)
  Receive Date: 20080604
  Receipt Date: 20080604
  Transmission Date: 20081010
  Serious: Yes (Other)
  Sender: FDA-Public Use
  Company Number: None

PATIENT
  Sex: Female
  Weight: 65.7716 kg

DRUGS (2)
  1. OXICARBOZINE 150MG LEXMARK [Suspect]
     Indication: TRIGEMINAL NEURALGIA
     Dosage: VARIES
     Dates: start: 20080101, end: 20080601
  2. OXICARBOZINE 150MG SUN [Suspect]

REACTIONS (7)
  - ASTHENIA [None]
  - BREAKTHROUGH PAIN [None]
  - DECREASED APPETITE [None]
  - DRUG EFFECT DECREASED [None]
  - FATIGUE [None]
  - FEELING ABNORMAL [None]
  - PHARMACEUTICAL PRODUCT COMPLAINT [None]
